APPROVED DRUG PRODUCT: ACTONEL
Active Ingredient: RISEDRONATE SODIUM
Strength: 150MG
Dosage Form/Route: TABLET;ORAL
Application: N020835 | Product #005 | TE Code: AB
Applicant: ALLERGAN PHARMACEUTICALS INTERNATIONAL LTD
Approved: Apr 22, 2008 | RLD: Yes | RS: Yes | Type: RX